FAERS Safety Report 5869020-4 (Version None)
Quarter: 2008Q3

REPORT INFORMATION
  Report Type: 
  Country: None (occurrence: None)
  Receive Date: 20080903
  Receipt Date: 20080829
  Transmission Date: 20090109
  Serious: Yes (Hospitalization)
  Sender: FDA-Public Use
  Company Number: A0744563A

PATIENT
  Age: 39 Year
  Sex: Male
  Weight: 117.3 kg

DRUGS (6)
  1. AVANDIA [Suspect]
     Dosage: 2MG TWICE PER DAY
     Route: 048
     Dates: start: 20030801, end: 20050101
  2. ALTACE [Concomitant]
     Dosage: 10MG TWICE PER DAY
  3. COREG [Concomitant]
     Indication: HYPERTENSION
     Dosage: 3.125MG TWICE PER DAY
     Route: 048
  4. KDUR [Concomitant]
     Dosage: 20MG PER DAY
  5. LASIX [Concomitant]
     Dosage: 40MG PER DAY
  6. CATAPRES [Concomitant]
     Dosage: .3MG THREE TIMES PER DAY
     Route: 048

REACTIONS (3)
  - CARDIAC FAILURE CONGESTIVE [None]
  - CHEST PAIN [None]
  - PERICARDIAL EFFUSION [None]
